FAERS Safety Report 8135275-9 (Version None)
Quarter: 2012Q1

REPORT INFORMATION
  Report Type: 
  Country: None (occurrence: None)
  Receive Date: 20120214
  Receipt Date: 20120210
  Transmission Date: 20120608
  Serious: No
  Sender: FDA-Public Use
  Company Number: US-PFIZER INC-2011004836

PATIENT
  Age: 92 Year
  Sex: Female
  Weight: 56.689 kg

DRUGS (5)
  1. LYRICA [Suspect]
     Dosage: ONE CAPSULE IN THE MORNING AND ONE CAPSULE AT BEDTIME
     Dates: start: 20110301
  2. LYRICA [Suspect]
     Dosage: 1 CAPSULE IN MORNING AND 2 CAPSULES AT BEDTIME
  3. LYRICA [Suspect]
     Indication: HERPES ZOSTER
     Dosage: ONE CAPSULE DAILY AT BEDTIME
     Route: 048
     Dates: start: 20110318
  4. ACETYLSALICYLIC ACID [Concomitant]
     Indication: HEADACHE
     Dosage: UNK
  5. ACETAMINOPHEN [Concomitant]
     Indication: HEADACHE
     Dosage: UNK

REACTIONS (4)
  - DRUG INEFFECTIVE [None]
  - DRUG ADMINISTRATION ERROR [None]
  - FEELING ABNORMAL [None]
  - WEIGHT DECREASED [None]
